FAERS Safety Report 5797955-X (Version None)
Quarter: 2008Q3

REPORT INFORMATION
  Report Type: 
  Country: None (occurrence: None)
  Receive Date: 20080702
  Receipt Date: 20080618
  Transmission Date: 20090109
  Serious: Yes (Hospitalization, Other)
  Sender: FDA-Public Use
  Company Number: US-AMGEN-US284716

PATIENT
  Sex: Female
  Weight: 12 kg

DRUGS (10)
  1. EPOGEN [Suspect]
     Indication: DIALYSIS
     Route: 058
     Dates: start: 20070523
  2. LANSOPRAZOLE [Concomitant]
     Route: 051
  3. CALCITRIOL [Concomitant]
     Route: 048
  4. IRON [Concomitant]
     Route: 048
  5. SODIUM PHOSPHATE (32 P) [Concomitant]
     Route: 048
  6. VITAMIN CAP [Concomitant]
  7. KAYEXALATE [Concomitant]
     Route: 048
  8. BACTRIM [Concomitant]
  9. LACTOBACILLUS ACIDOPHILUS [Concomitant]
     Route: 065
  10. NYSTATIN [Concomitant]
     Route: 048

REACTIONS (9)
  - ANAEMIA [None]
  - CLOSTRIDIUM DIFFICILE COLITIS [None]
  - CYSTOSTOMY CLOSURE [None]
  - ENTEROCOCCAL INFECTION [None]
  - HYPERTENSION [None]
  - PERITONITIS [None]
  - ROTAVIRUS INFECTION [None]
  - TACHYCARDIA [None]
  - UPPER GASTROINTESTINAL HAEMORRHAGE [None]
